FAERS Safety Report 16166867 (Version 1)
Quarter: 2019Q2

REPORT INFORMATION
  Report Type: Spontaneous
  Country: GB (occurrence: GB)
  Receive Date: 20190408
  Receipt Date: 20190408
  Transmission Date: 20190711
  Serious: Yes (Other)
  Sender: FDA-Public Use
  Company Number: GB-CELLTRION INC.-2019GB020119

PATIENT

DRUGS (12)
  1. RITUXIMAB (UNKNOWN) [Suspect]
     Active Substance: RITUXIMAB
     Dosage: SECOND CYCLE
     Route: 065
  2. IDELALISIB [Suspect]
     Active Substance: IDELALISIB
     Dosage: UNK, SEVENTH CYCLE
     Route: 048
  3. IDELALISIB [Suspect]
     Active Substance: IDELALISIB
     Dosage: UNK, THIRD CYCLE (REDUCED DOSE)
     Route: 048
  4. IDELALISIB [Suspect]
     Active Substance: IDELALISIB
     Indication: B-CELL PROLYMPHOCYTIC LEUKAEMIA
     Dosage: 150MG TWICE DAILY ADMINISTERED CONTINUOUSLY
     Route: 048
  5. IDELALISIB [Suspect]
     Active Substance: IDELALISIB
     Dosage: UNK, SECOND CYCLE
     Route: 048
  6. IDELALISIB [Suspect]
     Active Substance: IDELALISIB
     Dosage: UNK, CYCLE 16
     Route: 048
  7. PREDNISOLONE. [Concomitant]
     Active Substance: PREDNISOLONE
     Dosage: UNK
  8. IDELALISIB [Suspect]
     Active Substance: IDELALISIB
     Dosage: UNK, CYCLE 11
     Route: 048
  9. VALGANCICLOVIR. [Concomitant]
     Active Substance: VALGANCICLOVIR
     Dosage: UNK
  10. BUDESONIDE. [Concomitant]
     Active Substance: BUDESONIDE
     Dosage: UNK
  11. RITUXIMAB (UNKNOWN) [Suspect]
     Active Substance: RITUXIMAB
     Indication: B-CELL PROLYMPHOCYTIC LEUKAEMIA
     Dosage: TWO WEEKLY (CYCLE 12), FOLLOWED BY FOUR WEEKLY (CYCLES 36) DOSES
     Route: 065
  12. IDELALISIB [Suspect]
     Active Substance: IDELALISIB
     Dosage: 100MG TWICE DAILY DURING CYCLE 10
     Route: 048

REACTIONS (6)
  - Off label use [Unknown]
  - Cytomegalovirus colitis [Unknown]
  - Organising pneumonia [Unknown]
  - Diarrhoea [Unknown]
  - Alanine aminotransferase increased [Unknown]
  - Rash [Unknown]
